FAERS Safety Report 19977952 (Version 1)
Quarter: 2021Q4

REPORT INFORMATION
  Report Type: Spontaneous
  Country: US (occurrence: US)
  Receive Date: 20211019
  Receipt Date: 20211019
  Transmission Date: 20220303
  Serious: Yes (Hospitalization)
  Sender: FDA-Public Use
  Company Number: None

PATIENT
  Sex: Male

DRUGS (1)
  1. ABIRATERONE ACETATE [Suspect]
     Active Substance: ABIRATERONE ACETATE
     Indication: Prostate cancer
     Dosage: ?          OTHER FREQUENCY:SEE B.6(PAGE2);
     Route: 048
     Dates: start: 20210318

REACTIONS (2)
  - Cataract operation [None]
  - Therapy interrupted [None]
